FAERS Safety Report 19376554 (Version 2)
Quarter: 2022Q1

REPORT INFORMATION
  Report Type: Spontaneous
  Country: US (occurrence: None)
  Receive Date: 20210604
  Receipt Date: 20220121
  Transmission Date: 20220423
  Serious: Yes (Other)
  Sender: FDA-Public Use
  Company Number: 2021A489044

PATIENT
  Age: 73 Year
  Sex: Male
  Weight: 93 kg

DRUGS (56)
  1. PRILOSEC [Suspect]
     Active Substance: OMEPRAZOLE MAGNESIUM
     Indication: Gastrooesophageal reflux disease
     Route: 048
     Dates: start: 1989, end: 2018
  2. PRILOSEC [Suspect]
     Active Substance: OMEPRAZOLE MAGNESIUM
     Indication: Gastrooesophageal reflux disease
     Dosage: GENERIC
     Route: 065
  3. NEXIUM [Suspect]
     Active Substance: ESOMEPRAZOLE MAGNESIUM
     Indication: Gastrooesophageal reflux disease
     Route: 048
     Dates: start: 2001, end: 2018
  4. PRILOSEC OTC [Suspect]
     Active Substance: OMEPRAZOLE MAGNESIUM
     Indication: Gastrooesophageal reflux disease
     Route: 048
     Dates: start: 2003, end: 2018
  5. PRILOSEC OTC [Suspect]
     Active Substance: OMEPRAZOLE MAGNESIUM
     Indication: Gastrooesophageal reflux disease
     Route: 048
     Dates: start: 1989, end: 2018
  6. PREVACID [Suspect]
     Active Substance: LANSOPRAZOLE
     Indication: Gastrooesophageal reflux disease
     Route: 065
     Dates: start: 1995, end: 2018
  7. PREVACID [Suspect]
     Active Substance: LANSOPRAZOLE
     Indication: Gastrooesophageal reflux disease
     Route: 065
     Dates: start: 1989, end: 2018
  8. PROTONIX [Suspect]
     Active Substance: PANTOPRAZOLE SODIUM
     Indication: Gastrooesophageal reflux disease
     Route: 065
     Dates: start: 2000, end: 2018
  9. PROTONIX [Suspect]
     Active Substance: PANTOPRAZOLE SODIUM
     Indication: Gastrooesophageal reflux disease
     Route: 065
     Dates: start: 1989, end: 2018
  10. LOSARTAN [Concomitant]
     Active Substance: LOSARTAN
     Indication: Blood pressure abnormal
  11. TORSEMIDE [Concomitant]
     Active Substance: TORSEMIDE
     Indication: Oedema
  12. ROSUVASTATIN [Concomitant]
     Active Substance: ROSUVASTATIN
     Indication: Blood cholesterol
  13. TRAMADOL [Concomitant]
     Active Substance: TRAMADOL
     Indication: Pain
  14. FAMOTIDINE [Concomitant]
     Active Substance: FAMOTIDINE
  15. PEPCID [Concomitant]
     Active Substance: FAMOTIDINE
  16. ZANTAC [Concomitant]
     Active Substance: RANITIDINE HYDROCHLORIDE
  17. RANITIDINE [Concomitant]
     Active Substance: RANITIDINE
  18. METOPROLOL [Concomitant]
     Active Substance: METOPROLOL
  19. MORPHINE [Concomitant]
     Active Substance: MORPHINE
  20. CIPROFLOXACIN [Concomitant]
     Active Substance: CIPROFLOXACIN
  21. TIZANIDINE [Concomitant]
     Active Substance: TIZANIDINE
  22. AMOX K-CLAV [Concomitant]
  23. ACETAMINOPHEN\HYDROCODONE BITARTRATE [Concomitant]
     Active Substance: ACETAMINOPHEN\HYDROCODONE BITARTRATE
  24. CELEBREX [Concomitant]
     Active Substance: CELECOXIB
  25. KADIAN [Concomitant]
     Active Substance: MORPHINE SULFATE
  26. DICLOFENAC [Concomitant]
     Active Substance: DICLOFENAC
  27. LORATADINE [Concomitant]
     Active Substance: LORATADINE
  28. AMLODIPINE BESYLATE\BENAZEPRIL HYDROCHLORIDE [Concomitant]
     Active Substance: AMLODIPINE BESYLATE\BENAZEPRIL HYDROCHLORIDE
  29. CYMBALTA [Concomitant]
     Active Substance: DULOXETINE HYDROCHLORIDE
  30. VYTORIN [Concomitant]
     Active Substance: EZETIMIBE\SIMVASTATIN
  31. FLAGYL [Concomitant]
     Active Substance: METRONIDAZOLE\METRONIDAZOLE HYDROCHLORIDE
  32. FLOMAX [Concomitant]
     Active Substance: TAMSULOSIN HYDROCHLORIDE
  33. PROMETHAZINE [Concomitant]
     Active Substance: PROMETHAZINE HYDROCHLORIDE
  34. MEPERIDINE HYDROCHLORIDE [Concomitant]
     Active Substance: MEPERIDINE HYDROCHLORIDE
  35. ZOLPIDEM [Concomitant]
     Active Substance: ZOLPIDEM TARTRATE
  36. SIMVASTATIN [Concomitant]
     Active Substance: SIMVASTATIN
  37. MELOXICAM [Concomitant]
     Active Substance: MELOXICAM
  38. GABAPENTIN [Concomitant]
     Active Substance: GABAPENTIN
  39. DULOXETINE [Concomitant]
     Active Substance: DULOXETINE
  40. SULINDAC [Concomitant]
     Active Substance: SULINDAC
  41. ATROPINE [Concomitant]
     Active Substance: ATROPINE
  42. CLONAZEPAM [Concomitant]
     Active Substance: CLONAZEPAM
  43. ROPINIROLE [Concomitant]
     Active Substance: ROPINIROLE
  44. NABUMETONE [Concomitant]
     Active Substance: NABUMETONE
  45. IBUPROFEN [Concomitant]
     Active Substance: IBUPROFEN
  46. BUMETANIDE [Concomitant]
     Active Substance: BUMETANIDE
  47. LEVOFLOXACIN [Concomitant]
     Active Substance: LEVOFLOXACIN
  48. GLIMEPIRIDE [Concomitant]
     Active Substance: GLIMEPIRIDE
  49. MYRBETRIQ [Concomitant]
     Active Substance: MIRABEGRON
  50. FENOFIBRATE [Concomitant]
     Active Substance: FENOFIBRATE
  51. FLUOCINONIDE [Concomitant]
     Active Substance: FLUOCINONIDE
  52. NITROFURANTOIN [Concomitant]
     Active Substance: NITROFURANTOIN
  53. VITAMIN B12 [Concomitant]
     Active Substance: CYANOCOBALAMIN
  54. OXYCODONE [Concomitant]
     Active Substance: OXYCODONE
  55. OXYBUTYNIN [Concomitant]
     Active Substance: OXYBUTYNIN
  56. VITAMIN C [Concomitant]
     Active Substance: ASCORBIC ACID

REACTIONS (3)
  - Chronic kidney disease [Not Recovered/Not Resolved]
  - Acute kidney injury [Not Recovered/Not Resolved]
  - Gastrooesophageal reflux disease [Not Recovered/Not Resolved]

NARRATIVE: CASE EVENT DATE: 20170101
